FAERS Safety Report 6387404-5 (Version None)
Quarter: 2009Q3

REPORT INFORMATION
  Report Type: 
  Country: None (occurrence: None)
  Receive Date: 20090930
  Receipt Date: 20090914
  Transmission Date: 20100115
  Serious: Yes (Hospitalization, Other)
  Sender: FDA-Public Use
  Company Number: 2008AL009399

PATIENT
  Age: 54 Year
  Sex: Female

DRUGS (26)
  1. DIGOXIN [Suspect]
     Indication: CARDIAC FAILURE CONGESTIVE
     Dosage: 0.125MG, DAILY, PO
     Route: 048
     Dates: start: 19980711
  2. LASIX [Concomitant]
  3. MAGNESIUM OXIDE [Concomitant]
  4. PROZAC [Concomitant]
  5. ALTACE [Concomitant]
  6. COREG [Concomitant]
  7. HUMULIN R [Concomitant]
  8. DARVOCET [Concomitant]
  9. LANTUS [Concomitant]
  10. LEVAQUIN [Concomitant]
  11. FLAGYL [Concomitant]
  12. POTASSIUM CHLORIDE [Concomitant]
  13. SUCRALFATE [Concomitant]
  14. SODIUM CHLORIDE [Concomitant]
  15. PANTOPRAZOLE SODIUM [Concomitant]
  16. NYSTATIN [Concomitant]
  17. TYLENOL (CAPLET) [Concomitant]
  18. RAMIPRIL [Concomitant]
  19. DIPHENOXYL [Concomitant]
  20. ALDACTONE [Concomitant]
  21. ASPIRIN [Concomitant]
  22. LIPITOR [Concomitant]
  23. GLYBURIDE [Concomitant]
  24. MONOPRIL [Concomitant]
  25. PREMARIN [Concomitant]
  26. PROVERA [Concomitant]

REACTIONS (21)
  - APPETITE DISORDER [None]
  - ASTHENIA [None]
  - BLOOD POTASSIUM INCREASED [None]
  - CARDIOMYOPATHY [None]
  - CHEST DISCOMFORT [None]
  - COLD SWEAT [None]
  - DEHYDRATION [None]
  - DIZZINESS [None]
  - DYSPNOEA [None]
  - GASTROENTERITIS [None]
  - HEART RATE IRREGULAR [None]
  - HYPOTENSION [None]
  - INFECTION [None]
  - INJURY [None]
  - MITRAL VALVE INCOMPETENCE [None]
  - NOCTURIA [None]
  - ORTHOPNOEA [None]
  - PULMONARY HYPERTENSION [None]
  - SYNCOPE [None]
  - VENTRICULAR TACHYCARDIA [None]
  - VISUAL IMPAIRMENT [None]
